FAERS Safety Report 18571064 (Version 1)
Quarter: 2020Q4

REPORT INFORMATION
  Report Type: Spontaneous
  Country: US (occurrence: US)
  Receive Date: 20201202
  Receipt Date: 20201202
  Transmission Date: 20210114
  Serious: No
  Sender: FDA-Public Use
  Company Number: US-NOVEN PHARMACEUTICALS, INC.-US2020000089

PATIENT

DRUGS (3)
  1. AGX ESTRADIOL FOR MINIVELLE [Suspect]
     Active Substance: ESTRADIOL
     Indication: HOT FLUSH
     Dosage: 0.1 MG
     Route: 062
     Dates: start: 201907
  2. AGX ESTRADIOL FOR MINIVELLE [Suspect]
     Active Substance: ESTRADIOL
     Indication: NIGHT SWEATS
  3. GABAPENTIN. [Concomitant]
     Active Substance: GABAPENTIN
     Indication: NEURALGIA
     Dosage: UNK, UNKNOWN

REACTIONS (4)
  - Product adhesion issue [Unknown]
  - Insomnia [Not Recovered/Not Resolved]
  - Product quality issue [Unknown]
  - Therapeutic product ineffective [Not Recovered/Not Resolved]
